FAERS Safety Report 14480490 (Version 2)
Quarter: 2018Q3

REPORT INFORMATION
  Report Type: Spontaneous
  Country: US (occurrence: US)
  Receive Date: 20180202
  Receipt Date: 20180709
  Transmission Date: 20181010
  Serious: No
  Sender: FDA-Public Use
  Company Number: US-BIOFRONTERA-000441

PATIENT
  Age: 23 Year
  Sex: Female

DRUGS (2)
  1. AMELUZ [Suspect]
     Active Substance: AMINOLEVULINIC ACID HYDROCHLORIDE
     Indication: ACNE
     Route: 061
     Dates: start: 20180122, end: 20180122
  2. SPIRONOLACTONE. [Concomitant]
     Active Substance: SPIRONOLACTONE
     Indication: ACNE
     Dates: start: 20180111

REACTIONS (5)
  - Application site pustules [Recovered/Resolved]
  - Application site pruritus [Recovered/Resolved]
  - Off label use [Recovered/Resolved]
  - Application site pain [Recovered/Resolved]
  - Application site swelling [Recovered/Resolved]

NARRATIVE: CASE EVENT DATE: 20180122
